FAERS Safety Report 7742766-9 (Version None)
Quarter: 2011Q3

REPORT INFORMATION
  Report Type: 
  Country: None (occurrence: None)
  Receive Date: 20110912
  Receipt Date: 20110831
  Transmission Date: 20111222
  Serious: Yes (Death, Life-Threatening, Other)
  Sender: FDA-Public Use
  Company Number: JP-CELGENEUS-087-50794-11073207

PATIENT
  Sex: Female
  Weight: 60 kg

DRUGS (14)
  1. VIDAZA [Suspect]
     Indication: MYELODYSPLASTIC SYNDROME
     Dosage: 60 MILLIGRAM
     Route: 041
     Dates: start: 20110520, end: 20110526
  2. OMEGACIN [Concomitant]
     Dosage: 600 MILLIGRAM
     Route: 041
     Dates: start: 20110526, end: 20110606
  3. RECOMODULIN [Concomitant]
     Dosage: 25.6 KALLIKREIN UNIT
     Route: 041
     Dates: start: 20110607, end: 20110609
  4. RABEPRAZOLE SODIUM [Concomitant]
     Indication: PREMEDICATION
     Dosage: 10 MILLIGRAM
     Route: 048
  5. ITRACONAZOLE [Concomitant]
     Indication: PREMEDICATION
     Dosage: 100 MILLIGRAM
     Route: 048
  6. SOLU-CORTEF [Concomitant]
     Dosage: 100 MILLIGRAM
     Route: 041
     Dates: start: 20110525, end: 20110607
  7. FUTHAN [Concomitant]
     Dosage: 150 MILLIGRAM
     Route: 041
     Dates: start: 20110526, end: 20110606
  8. NEUART [Concomitant]
     Dosage: 1500 MICROGRAM
     Route: 058
     Dates: start: 20110607, end: 20110609
  9. PREDNISOLONE [Concomitant]
     Indication: PREMEDICATION
     Dosage: 7.5 MILLIGRAM
     Route: 041
  10. MAXIPIME [Concomitant]
     Dosage: 2 GRAM
     Route: 041
     Dates: start: 20110520, end: 20110527
  11. NEUTROGIN [Concomitant]
     Dosage: 250 MICROGRAM
     Route: 058
     Dates: start: 20110527, end: 20110609
  12. DORIPENEM MONOHYDRATE [Concomitant]
     Dosage: 250 MILLIGRAM
     Route: 041
     Dates: start: 20110607, end: 20110609
  13. FLUCONAZOLE [Concomitant]
     Dosage: 200 MILLIGRAM
     Route: 041
     Dates: start: 20110601, end: 20110606
  14. FAMOTIDINE [Concomitant]
     Dosage: 20 MILLIGRAM
     Route: 048
     Dates: start: 20110601, end: 20110609

REACTIONS (8)
  - HAEMOGLOBIN DECREASED [None]
  - PLATELET COUNT DECREASED [None]
  - HYPONATRAEMIA [None]
  - SEPSIS [None]
  - RENAL IMPAIRMENT [None]
  - WHITE BLOOD CELL COUNT DECREASED [None]
  - HYPERKALAEMIA [None]
  - PULMONARY THROMBOSIS [None]
